FAERS Safety Report 5611742-4 (Version None)
Quarter: 2008Q1

REPORT INFORMATION
  Report Type: 
  Country: None (occurrence: None)
  Receive Date: 20080128
  Receipt Date: 20070907
  Transmission Date: 20080703
  Serious: Yes (Other)
  Sender: FDA-Public Use
  Company Number: OSCN-NO-0708S-0323

PATIENT
  Age: 27 Year
  Sex: Female

DRUGS (3)
  1. OMNISCAN [Suspect]
     Indication: DRUG USE FOR UNKNOWN INDICATION
     Dosage: 0.1 MMOL/KG, SINGLE DOSE, I.V.; 0.1 MMOL/KG, SINGLE DOSE, I.V.; 0.1 MMOL/KG, SINGLE DOSE, I.V.
     Route: 042
     Dates: start: 20040708, end: 20040708
  2. OMNISCAN [Suspect]
     Indication: DRUG USE FOR UNKNOWN INDICATION
     Dosage: 0.1 MMOL/KG, SINGLE DOSE, I.V.; 0.1 MMOL/KG, SINGLE DOSE, I.V.; 0.1 MMOL/KG, SINGLE DOSE, I.V.
     Route: 042
     Dates: start: 20050819, end: 20050819
  3. OMNISCAN [Suspect]
     Indication: DRUG USE FOR UNKNOWN INDICATION
     Dosage: 0.1 MMOL/KG, SINGLE DOSE, I.V.; 0.1 MMOL/KG, SINGLE DOSE, I.V.; 0.1 MMOL/KG, SINGLE DOSE, I.V.
     Route: 042
     Dates: start: 20060306, end: 20060306

REACTIONS (14)
  - HAEMATURIA [None]
  - HAEMODIALYSIS [None]
  - KIDNEY TRANSPLANT REJECTION [None]
  - LYMPHOCELE [None]
  - NEPHROGENIC SYSTEMIC FIBROSIS [None]
  - NEPHROPATHY TOXIC [None]
  - PERITONITIS BACTERIAL [None]
  - POST PROCEDURAL HAEMORRHAGE [None]
  - RENAL ARTERY STENOSIS [None]
  - RENAL IMPAIRMENT [None]
  - RENAL TRANSPLANT [None]
  - STAPHYLOCOCCAL INFECTION [None]
  - SURGICAL PROCEDURE REPEATED [None]
  - WOUND DEHISCENCE [None]
